FAERS Safety Report 5429220-4 (Version None)
Quarter: 2007Q3

REPORT INFORMATION
  Report Type: 
  Country: None (occurrence: None)
  Receive Date: 20070827
  Receipt Date: 20070827
  Transmission Date: 20080115
  Serious: Yes (Other)
  Sender: FDA-Public Use
  Company Number: None

PATIENT
  Age: 68 Year
  Sex: Female
  Weight: 62.1428 kg

DRUGS (3)
  1. FORTEO [Suspect]
     Indication: OSTEOPOROSIS
     Dosage: 20 MCG DAILY SQ
     Route: 058
     Dates: start: 20061001, end: 20070415
  2. PREDNISONE [Concomitant]
  3. ALLOPURINOL [Concomitant]

REACTIONS (1)
  - GOUT [None]
